FAERS Safety Report 5458061-7 (Version None)
Quarter: 2007Q3

REPORT INFORMATION
  Report Type: 
  Country: None (occurrence: None)
  Receive Date: 20070919
  Receipt Date: 20070912
  Transmission Date: 20080115
  Serious: Yes (Other)
  Sender: FDA-Public Use
  Company Number: PHBS2007ZA15058

PATIENT
  Age: 61 Year
  Sex: Female

DRUGS (2)
  1. VOLTAREN [Suspect]
     Indication: FIBROMYALGIA
  2. NEXIUM [Concomitant]

REACTIONS (2)
  - FEELING HOT [None]
  - PARAESTHESIA [None]
